FAERS Safety Report 6074560-1 (Version None)
Quarter: 2009Q1

REPORT INFORMATION
  Report Type: 
  Country: None (occurrence: None)
  Receive Date: 20090206
  Receipt Date: 20090122
  Transmission Date: 20090719
  Serious: Yes (Hospitalization)
  Sender: FDA-Public Use
  Company Number: 8041640

PATIENT

DRUGS (1)
  1. KEPPRA [Suspect]
     Dosage: 1000 MG 3/D

REACTIONS (2)
  - MENINGITIS [None]
  - WRONG TECHNIQUE IN DRUG USAGE PROCESS [None]
